FAERS Safety Report 16260245 (Version 3)
Quarter: 2023Q2

REPORT INFORMATION
  Report Type: Spontaneous
  Country: US (occurrence: US)
  Receive Date: 20190501
  Receipt Date: 20230411
  Transmission Date: 20230721
  Serious: No
  Sender: FDA-Public Use
  Company Number: US-PFIZER INC-2019181789

PATIENT
  Age: 62 Year
  Sex: Male

DRUGS (2)
  1. NICOTROL [Suspect]
     Active Substance: NICOTINE
     Indication: Nicotine dependence
     Dosage: 10 MG (INHALE 1 CARTRIDGE INTO THE LUNGS AS NEEDED FOR NICOTINE CRAVING)
     Route: 055
     Dates: start: 2019
  2. NICOTROL [Suspect]
     Active Substance: NICOTINE
     Dosage: 10 MG (INHALE 1 CARTRIDGE INTO THE LUNGS AS NEEDED FOR NICOTINE CRAVING)
     Route: 055
     Dates: start: 20210915

REACTIONS (2)
  - Back pain [Unknown]
  - Incorrect product administration duration [Unknown]
